FAERS Safety Report 7332404-1 (Version None)
Quarter: 2011Q1

REPORT INFORMATION
  Report Type: 
  Country: None (occurrence: None)
  Receive Date: 20110304
  Receipt Date: 20110225
  Transmission Date: 20110831
  Serious: Yes (Other)
  Sender: FDA-Public Use
  Company Number: CH-JNJFOC-20110208207

PATIENT
  Age: 35 Year
  Sex: Female

DRUGS (2)
  1. TOPAMAX [Suspect]
     Indication: BORDERLINE PERSONALITY DISORDER
     Route: 048
  2. XANAX [Suspect]
     Indication: BORDERLINE PERSONALITY DISORDER
     Route: 065

REACTIONS (2)
  - PREMATURE LABOUR [None]
  - DRUG EXPOSURE DURING PREGNANCY [None]
